FAERS Safety Report 7066877-9 (Version None)
Quarter: 2010Q4

REPORT INFORMATION
  Report Type: 
  Country: None (occurrence: None)
  Receive Date: 20101027
  Receipt Date: 20101001
  Transmission Date: 20110411
  Serious: No
  Sender: FDA-Public Use
  Company Number: US-WYE-H17969310

PATIENT
  Age: 41 Year
  Sex: Female

DRUGS (3)
  1. PREMPRO [Suspect]
     Indication: HOT FLUSH
     Dosage: 0.625 MG ONCE DAILY
     Route: 048
     Dates: start: 20100806, end: 20100901
  2. PREMPRO [Suspect]
     Indication: NIGHT SWEATS
     Dosage: 0.45/1.5
     Route: 048
     Dates: start: 20100901
  3. TEMAZEPAM [Concomitant]

REACTIONS (3)
  - CONDITION AGGRAVATED [None]
  - FIBROCYSTIC BREAST DISEASE [None]
  - POLYMENORRHOEA [None]
